FAERS Safety Report 7503138-5 (Version None)
Quarter: 2011Q2

REPORT INFORMATION
  Report Type: 
  Country: None (occurrence: None)
  Receive Date: 20110525
  Receipt Date: 20110516
  Transmission Date: 20111010
  Serious: Yes (Other)
  Sender: FDA-Public Use
  Company Number: CN-ASTRAZENECA-2011SE30009

PATIENT
  Age: 62 Year
  Sex: Male
  Weight: 70 kg

DRUGS (2)
  1. PLENDIL [Suspect]
     Indication: CEREBRAL INFARCTION
     Route: 048
     Dates: start: 20030101
  2. BETALOC [Concomitant]
     Indication: CEREBRAL INFARCTION
     Route: 048
     Dates: start: 20030101

REACTIONS (2)
  - SUPRAVENTRICULAR EXTRASYSTOLES [None]
  - VENTRICULAR EXTRASYSTOLES [None]
